FAERS Safety Report 11744803 (Version 1)
Quarter: 2015Q4

REPORT INFORMATION
  Report Type: Spontaneous
  Country: US (occurrence: US)
  Receive Date: 20151116
  Receipt Date: 20151116
  Transmission Date: 20160304
  Serious: Yes (Other)
  Sender: FDA-Public Use
  Company Number: US-HOSPIRA-3078623

PATIENT
  Sex: Female

DRUGS (1)
  1. ONDANSETRON HOSPIRA [Suspect]
     Active Substance: ONDANSETRON
     Indication: VOMITING IN PREGNANCY

REACTIONS (2)
  - Premature delivery [Unknown]
  - Exposure during pregnancy [Unknown]
